FAERS Safety Report 4361132-X (Version None)
Quarter: 2004Q2

REPORT INFORMATION
  Report Type: 
  Country: None (occurrence: None)
  Receive Date: 20040511
  Receipt Date: 20040126
  Transmission Date: 20050107
  Serious: Yes (Hospitalization)
  Sender: FDA-Public Use
  Company Number: US_0401100252

PATIENT
  Age: 45 Year
  Sex: Female

DRUGS (2)
  1. PROZAC [Suspect]
     Indication: SLEEP DISORDER
  2. SEROQUEL [Concomitant]

REACTIONS (9)
  - ASTHENIA [None]
  - CONFUSIONAL STATE [None]
  - GAIT DISTURBANCE [None]
  - MANIA [None]
  - MASKED FACIES [None]
  - MEMORY IMPAIRMENT [None]
  - MULTIPLE ALLERGIES [None]
  - MYALGIA [None]
  - PAIN OF SKIN [None]
